FAERS Safety Report 6980560-7 (Version None)
Quarter: 2010Q3

REPORT INFORMATION
  Report Type: 
  Country: None (occurrence: None)
  Receive Date: 20100914
  Receipt Date: 20100909
  Transmission Date: 20110219
  Serious: Yes (Death, Hospitalization)
  Sender: FDA-Public Use
  Company Number: PHHY2010BR33558

PATIENT
  Sex: Male
  Weight: 51 kg

DRUGS (3)
  1. EXELON [Suspect]
     Indication: DEMENTIA ALZHEIMER'S TYPE
     Dosage: 9MG/5CM2
     Route: 062
  2. EXELON [Suspect]
     Dosage: 18MG/10CM2, 1 PATCH PER DAY
     Route: 062
  3. CITALOPRAM HYDROBROMIDE [Concomitant]
     Indication: MENTAL DISORDER
     Dosage: 1 DF, QD
     Route: 048
     Dates: start: 20070101

REACTIONS (3)
  - INFECTION [None]
  - PNEUMONIA [None]
  - RENAL DISORDER [None]
